FAERS Safety Report 10079392 (Version 1)
Quarter: 2014Q2

REPORT INFORMATION
  Report Type: Spontaneous
  Country: US (occurrence: None)
  Receive Date: 20140414
  Receipt Date: 20140414
  Transmission Date: 20141212
  Serious: Yes (Hospitalization, Other)
  Sender: FDA-Public Use
  Company Number: None

PATIENT
  Age: 73 Year
  Sex: Female
  Weight: 55.34 kg

DRUGS (1)
  1. ALENDRONATE [Suspect]
     Indication: OSTEOPENIA
     Dosage: 1 PILL, ONCE A WEEK ON SUN, TAKEN BY MOUTH
     Route: 048
     Dates: start: 20090228, end: 20140223

REACTIONS (4)
  - Pathological fracture [None]
  - Femur fracture [None]
  - Fall [None]
  - Bone disorder [None]
